FAERS Safety Report 10369823 (Version 4)
Quarter: 2014Q4

REPORT INFORMATION
  Report Type: Spontaneous
  Country: IT (occurrence: IT)
  Receive Date: 20140808
  Receipt Date: 20141125
  Transmission Date: 20150528
  Serious: Yes (Hospitalization)
  Sender: FDA-Public Use
  Company Number: IT-ROCHE-1444494

PATIENT
  Age: 32 Year
  Sex: Female

DRUGS (3)
  1. DIAZEPAM. [Suspect]
     Active Substance: DIAZEPAM
     Indication: INTENTIONAL SELF-INJURY
     Dosage: 5 MG / ML GTT
     Route: 048
     Dates: start: 20140714, end: 20140714
  2. SERTRALINE [Suspect]
     Active Substance: SERTRALINE HYDROCHLORIDE
     Indication: INTENTIONAL SELF-INJURY
     Route: 048
     Dates: start: 20140714, end: 20140714
  3. TRIAZOLAM. [Suspect]
     Active Substance: TRIAZOLAM
     Indication: INTENTIONAL SELF-INJURY
     Route: 048
     Dates: start: 20140714, end: 20140714

REACTIONS (4)
  - Drug abuse [Unknown]
  - Bradycardia [Recovering/Resolving]
  - Bundle branch block right [Recovering/Resolving]
  - Agitation [Recovering/Resolving]

NARRATIVE: CASE EVENT DATE: 20140714
